FAERS Safety Report 4485561-9 (Version None)
Quarter: 2004Q4

REPORT INFORMATION
  Report Type: 
  Country: None (occurrence: None)
  Receive Date: 20041026
  Receipt Date: 20040917
  Transmission Date: 20050328
  Serious: Yes (Other)
  Sender: FDA-Public Use
  Company Number: US-MERCK-0409USA01563

PATIENT
  Age: 9 Year
  Sex: Male

DRUGS (4)
  1. SINGULAIR [Suspect]
     Indication: ASTHMA
     Route: 048
     Dates: end: 20040901
  2. FLOVENT [Concomitant]
     Indication: ASTHMA
     Route: 065
     Dates: end: 20040701
  3. CLARITIN [Concomitant]
     Indication: RHINITIS
     Route: 065
     Dates: end: 20040901
  4. INTAL [Concomitant]
     Indication: ASTHMA
     Route: 065
     Dates: end: 20040701

REACTIONS (8)
  - ASTHENIA [None]
  - COORDINATION ABNORMAL [None]
  - EXTRAOCULAR MUSCLE PARESIS [None]
  - HYPOAESTHESIA [None]
  - MOTOR DYSFUNCTION [None]
  - MYALGIA [None]
  - PARAESTHESIA [None]
  - VISUAL DISTURBANCE [None]
